FAERS Safety Report 9001685 (Version 2)
Quarter: 2013Q2

REPORT INFORMATION
  Report Type: Report from Study
  Country: US (occurrence: US)
  Receive Date: 20130107
  Receipt Date: 20130521
  Transmission Date: 20140414
  Serious: Yes (Death, Other)
  Sender: FDA-Public Use
  Company Number: PHEH2013US000619

PATIENT
  Sex: Male

DRUGS (5)
  1. TOBI [Suspect]
     Indication: CYSTIC FIBROSIS
     Dosage: 300 MG ONCE A DAY FOR ONE MONTH ON AND ONE MONTH OFF
     Dates: start: 20110727
  2. FORADIL [Concomitant]
  3. MEPHYTON [Concomitant]
  4. ATROVENT [Concomitant]
  5. FOLIC ACID [Concomitant]

REACTIONS (3)
  - Multi-organ failure [Fatal]
  - Circulatory collapse [Unknown]
  - Loss of consciousness [Unknown]
